FAERS Safety Report 20226643 (Version 6)
Quarter: 2022Q4

REPORT INFORMATION
  Report Type: Report from Study
  Country: DE (occurrence: DE)
  Receive Date: 20211224
  Receipt Date: 20221219
  Transmission Date: 20230112
  Serious: Yes (Hospitalization, Other)
  Sender: FDA-Public Use
  Company Number: DE-NOVARTISPH-NVSC2021DE248564

PATIENT
  Sex: Male
  Weight: 110 kg

DRUGS (2)
  1. MAYZENT [Suspect]
     Active Substance: SIPONIMOD
     Indication: Secondary progressive multiple sclerosis
     Dosage: 2 MG, QD (STARTED ON 24/25 AUG 2020)
     Route: 048
     Dates: start: 202008, end: 20201218
  2. MAYZENT [Suspect]
     Active Substance: SIPONIMOD
     Dosage: 2 MG, QD, (INCLUDING RE-TITRATION)
     Route: 048
     Dates: start: 20210105

REACTIONS (9)
  - Multiple sclerosis relapse [Recovered/Resolved]
  - Paresis [Recovered/Resolved]
  - Dysarthria [Recovered/Resolved]
  - Dysphagia [Recovered/Resolved]
  - Anal incontinence [Unknown]
  - Multiple sclerosis relapse [Recovered/Resolved]
  - Lymphocyte count decreased [Not Recovered/Not Resolved]
  - Personality change [Not Recovered/Not Resolved]
  - Headache [Recovered/Resolved]

NARRATIVE: CASE EVENT DATE: 20210130
